FAERS Safety Report 4401665-0 (Version None)
Quarter: 2004Q3

REPORT INFORMATION
  Report Type: 
  Country: None (occurrence: None)
  Receive Date: 20040719
  Receipt Date: 20010515
  Transmission Date: 20050211
  Serious: Yes (Other)
  Sender: FDA-Public Use
  Company Number: US-GLAXOSMITHKLINE-A0148065A

PATIENT
  Age: 20 Year
  Sex: Female

DRUGS (2)
  1. WELLBUTRIN [Suspect]
     Dosage: 150MG TWICE PER DAY
     Route: 048
     Dates: start: 20010505, end: 20010513
  2. BIRTH CONTROL PILLS [Concomitant]

REACTIONS (18)
  - ABASIA [None]
  - AGGRESSION [None]
  - AMNESIA [None]
  - ASTHENIA [None]
  - BLINDNESS [None]
  - BLOOD URINE PRESENT [None]
  - DISABILITY [None]
  - EYELID FUNCTION DISORDER [None]
  - GRAND MAL CONVULSION [None]
  - HYPOAESTHESIA [None]
  - INSOMNIA [None]
  - LOSS OF CONSCIOUSNESS [None]
  - MOUTH HAEMORRHAGE [None]
  - MUSCLE TWITCHING [None]
  - RENAL IMPAIRMENT [None]
  - TONGUE BITING [None]
  - TREMOR [None]
  - VISION BLURRED [None]
